FAERS Safety Report 10011911 (Version 2)
Quarter: 2014Q1

REPORT INFORMATION
  Report Type: Spontaneous
  Country: US (occurrence: US)
  Receive Date: 20140314
  Receipt Date: 20140314
  Transmission Date: 20141002
  Serious: Yes (Disabling, Other)
  Sender: FDA-Public Use
  Company Number: US-SANOFI-AVENTIS-2012SA003232

PATIENT
  Sex: Male

DRUGS (1)
  1. PLAVIX [Suspect]
     Indication: PRODUCT USED FOR UNKNOWN INDICATION
     Route: 048
     Dates: start: 20060316, end: 20110706

REACTIONS (11)
  - Multiple injuries [Recovered/Resolved]
  - Physical disability [Not Recovered/Not Resolved]
  - Deformity [Not Recovered/Not Resolved]
  - Pain [Not Recovered/Not Resolved]
  - Tension [Not Recovered/Not Resolved]
  - Psychological trauma [Not Recovered/Not Resolved]
  - Anhedonia [Not Recovered/Not Resolved]
  - Economic problem [Not Recovered/Not Resolved]
  - Loss of employment [Not Recovered/Not Resolved]
  - Social problem [Not Recovered/Not Resolved]
  - Gastrointestinal haemorrhage [Recovered/Resolved]
